FAERS Safety Report 6339704-2 (Version None)
Quarter: 2009Q3

REPORT INFORMATION
  Report Type: 
  Country: None (occurrence: None)
  Receive Date: 20090903
  Receipt Date: 20090825
  Transmission Date: 20100115
  Serious: Yes (Hospitalization)
  Sender: FDA-Public Use
  Company Number: FR-CELGENEUS-056-C5013-09081887

PATIENT
  Sex: Male
  Weight: 55 kg

DRUGS (11)
  1. THALIDOMIDE [Suspect]
     Indication: MULTIPLE MYELOMA
     Route: 048
     Dates: start: 20090324, end: 20090731
  2. MELPHALAN HYDROCHLORIDE [Suspect]
     Indication: MULTIPLE MYELOMA
     Route: 065
     Dates: start: 20090324, end: 20090730
  3. PREDNISONE [Suspect]
     Indication: MULTIPLE MYELOMA
     Route: 065
     Dates: start: 20090324, end: 20090730
  4. VASTAREL [Concomitant]
     Indication: PROPHYLAXIS
     Route: 048
     Dates: start: 19890101
  5. KARDEGIC [Concomitant]
     Indication: THROMBOSIS PROPHYLAXIS
     Route: 048
     Dates: start: 19890101, end: 20090807
  6. PERMIXON [Concomitant]
     Route: 048
     Dates: start: 20080101
  7. ZANIDIP [Concomitant]
     Route: 048
     Dates: start: 19890101
  8. FLECAINIDE ACETATE [Concomitant]
     Route: 048
     Dates: start: 19890101, end: 20090731
  9. DAFALGAN [Concomitant]
     Indication: BONE PAIN
     Route: 048
     Dates: start: 20090320
  10. EPREX [Concomitant]
     Route: 058
     Dates: start: 20090415, end: 20090728
  11. MOPRAL [Concomitant]
     Indication: PROPHYLAXIS
     Route: 048
     Dates: start: 20090701

REACTIONS (1)
  - BRAIN STEM INFARCTION [None]
